FAERS Safety Report 20653293 (Version 2)
Quarter: 2022Q2

REPORT INFORMATION
  Report Type: Spontaneous
  Country: DE (occurrence: DE)
  Receive Date: 20220330
  Receipt Date: 20220408
  Transmission Date: 20220720
  Serious: No
  Sender: FDA-Public Use
  Company Number: DE-LUPIN PHARMACEUTICALS INC.-2022-04452

PATIENT
  Sex: Male

DRUGS (1)
  1. TADALAFIL [Suspect]
     Active Substance: TADALAFIL
     Indication: Prostatic disorder
     Dosage: UNK
     Route: 065

REACTIONS (4)
  - Product packaging quantity issue [Unknown]
  - Poor quality product administered [Unknown]
  - Off label use [Unknown]
  - No adverse event [Unknown]
